FAERS Safety Report 18034262 (Version 3)
Quarter: 2020Q3

REPORT INFORMATION
  Report Type: Report from Study
  Country: US (occurrence: US)
  Receive Date: 20200716
  Receipt Date: 20200818
  Transmission Date: 20201103
  Serious: No
  Sender: FDA-Public Use
  Company Number: NVSC2020US199904

PATIENT
  Sex: Female

DRUGS (1)
  1. PIQRAY [Suspect]
     Active Substance: ALPELISIB
     Indication: BREAST CANCER
     Dosage: UNK (VIA MOUTH)
     Route: 048

REACTIONS (2)
  - Fatigue [Unknown]
  - Hyperglycaemia [Unknown]
